FAERS Safety Report 9557637 (Version 2)
Quarter: 2013Q4

REPORT INFORMATION
  Report Type: Spontaneous
  Country: BE (occurrence: BE)
  Receive Date: 20130926
  Receipt Date: 20131119
  Transmission Date: 20140711
  Serious: Yes (Hospitalization)
  Sender: FDA-Public Use
  Company Number: BE-GLAXOSMITHKLINE-B0925250A

PATIENT
  Age: 69 Year
  Sex: Female
  Weight: 69 kg

DRUGS (4)
  1. RYTMONORM [Suspect]
     Dosage: 150MG THREE TIMES PER DAY
     Route: 048
     Dates: start: 201110
  2. ORANGE JUICE [Suspect]
     Indication: PRODUCT USED FOR UNKNOWN INDICATION
     Route: 065
     Dates: end: 20130808
  3. GRAPE JUICE [Suspect]
     Indication: PRODUCT USED FOR UNKNOWN INDICATION
     Route: 065
     Dates: end: 20130808
  4. D-CURE [Concomitant]
     Indication: AUTOPHONY
     Dosage: 18DROP PER DAY
     Route: 048
     Dates: start: 201206

REACTIONS (3)
  - Convulsion [Recovered/Resolved]
  - Myoclonus [Recovered/Resolved]
  - Tremor [Recovering/Resolving]
